FAERS Safety Report 6330073-0 (Version None)
Quarter: 2009Q3

REPORT INFORMATION
  Report Type: 
  Country: None (occurrence: None)
  Receive Date: 20090827
  Receipt Date: 20090824
  Transmission Date: 20100115
  Serious: Yes (Disabling)
  Sender: FDA-Public Use
  Company Number: JP-SP-2009-03669

PATIENT
  Age: 75 Year
  Sex: Male

DRUGS (2)
  1. IMMUCYST [Suspect]
     Indication: BLADDER CANCER
     Route: 043
     Dates: start: 20081103, end: 20090508
  2. IMMUCYST [Suspect]
     Route: 043
     Dates: start: 20081103, end: 20090508

REACTIONS (4)
  - BLADDER DISORDER [None]
  - BLOOD CREATININE INCREASED [None]
  - HYDRONEPHROSIS [None]
  - URINARY INCONTINENCE [None]
